FAERS Safety Report 4749525-X (Version None)
Quarter: 2005Q3

REPORT INFORMATION
  Report Type: 
  Country: None (occurrence: None)
  Receive Date: 20050822
  Receipt Date: 20040702
  Transmission Date: 20060218
  Serious: Yes (Hospitalization, Other)
  Sender: FDA-Public Use
  Company Number: US-GLAXOSMITHKLINE-A0518967A

PATIENT
  Age: 67 Year
  Sex: Male
  Weight: 73.6 kg

DRUGS (9)
  1. ACETAMINOPHEN, ASPIRIN AND CAFFEINE [Suspect]
     Indication: HEAD INJURY
     Route: 048
     Dates: end: 20020501
  2. BC HEADACHE POWDER [Suspect]
     Indication: HEADACHE
     Route: 048
  3. ASPIRIN [Suspect]
  4. PERCOCET [Concomitant]
     Indication: HEAD INJURY
     Dates: start: 19950101, end: 20020101
  5. TYLENOL [Concomitant]
     Indication: HEAD INJURY
     Route: 048
  6. AMBIEN [Concomitant]
     Route: 048
  7. ATIVAN [Concomitant]
  8. BAYER (UNSPECIFIED) [Concomitant]
  9. FOLTX [Concomitant]

REACTIONS (58)
  - ABDOMINAL DISCOMFORT [None]
  - ABDOMINAL PAIN LOWER [None]
  - ABDOMINAL PAIN UPPER [None]
  - ACCELERATED HYPERTENSION [None]
  - ANAEMIA [None]
  - ANGINA PECTORIS [None]
  - ASTHENIA [None]
  - BLEEDING TIME ABNORMAL [None]
  - BRADYCARDIA [None]
  - CARDIAC FAILURE CONGESTIVE [None]
  - CARDIAC MURMUR [None]
  - CHEST DISCOMFORT [None]
  - CHEST PAIN [None]
  - CORONARY ARTERY DISEASE [None]
  - CORONARY ARTERY STENOSIS [None]
  - COUGH [None]
  - DECREASED APPETITE [None]
  - DEHYDRATION [None]
  - DIARRHOEA [None]
  - DILATATION VENTRICULAR [None]
  - DIZZINESS [None]
  - DYSPEPSIA [None]
  - DYSPNOEA [None]
  - DYSPNOEA EXERTIONAL [None]
  - EJECTION FRACTION DECREASED [None]
  - EROSIVE OESOPHAGITIS [None]
  - GALLOP RHYTHM PRESENT [None]
  - GASTRITIS EROSIVE [None]
  - GASTRITIS HAEMORRHAGIC [None]
  - HEADACHE [None]
  - HYPERSOMNIA [None]
  - HYPERTENSION [None]
  - HYPOKINESIA [None]
  - HYPOTENSION [None]
  - INTENTIONAL MISUSE [None]
  - MALIGNANT HYPERTENSION [None]
  - MYALGIA [None]
  - MYOCARDIAL INFARCTION [None]
  - NAUSEA [None]
  - NEPHROPATHY TOXIC [None]
  - NEPHROTIC SYNDROME [None]
  - OEDEMA PERIPHERAL [None]
  - OESOPHAGEAL ULCER [None]
  - ORAL INTAKE REDUCED [None]
  - PALPITATIONS [None]
  - POLLAKIURIA [None]
  - PROTEINURIA [None]
  - PULMONARY OEDEMA [None]
  - PYREXIA [None]
  - RALES [None]
  - RENAL FAILURE CHRONIC [None]
  - RHABDOMYOLYSIS [None]
  - SPUTUM PURULENT [None]
  - TREATMENT NONCOMPLIANCE [None]
  - URINARY TRACT DISORDER [None]
  - VENTRICULAR HYPERTROPHY [None]
  - VIRAL INFECTION [None]
  - VOMITING [None]
